FAERS Safety Report 4810958-4 (Version None)
Quarter: 2005Q4

REPORT INFORMATION
  Report Type: 
  Country: None (occurrence: None)
  Receive Date: 20051025
  Receipt Date: 20051008
  Transmission Date: 20060501
  Serious: Yes (Death, Hospitalization)
  Sender: FDA-Public Use
  Company Number: 2005125875

PATIENT
  Sex: Male

DRUGS (11)
  1. MACUGEN [Suspect]
     Indication: ILL-DEFINED DISORDER
     Dosage: INTRAVITREOUS
     Dates: end: 20050805
  2. MACUGEN [Suspect]
     Indication: MACULAR DEGENERATION
     Dosage: INTRAVITREOUS
     Dates: end: 20050805
  3. PLAVIX [Concomitant]
  4. ALAPRIL (LISINOPRIL) [Concomitant]
  5. ALL OTHER THERAPEUTIC PRODUCTS (ALL OTHER THERAPEUTIC PRODUCTS) [Concomitant]
  6. LIPITOR [Concomitant]
  7. ALBUTEROL [Concomitant]
  8. ALPRAZOLAM [Concomitant]
  9. VALIUM [Concomitant]
  10. AMITRIPTYLINE HCL [Concomitant]
  11. AMARYL [Concomitant]

REACTIONS (10)
  - ABDOMINAL HERNIA [None]
  - DISCOMFORT [None]
  - INTESTINAL PERFORATION [None]
  - INTRAOCULAR PRESSURE INCREASED [None]
  - NERVOUSNESS [None]
  - OPTIC NERVE DISORDER [None]
  - PELVIC VENOUS THROMBOSIS [None]
  - POST PROCEDURAL COMPLICATION [None]
  - RENAL FAILURE [None]
  - SEPSIS [None]
